FAERS Safety Report 14073389 (Version 1)
Quarter: 2017Q4

REPORT INFORMATION
  Report Type: Spontaneous
  Country: US (occurrence: US)
  Receive Date: 20171011
  Receipt Date: 20171011
  Transmission Date: 20180321
  Serious: Yes (Other)
  Sender: FDA-Public Use
  Company Number: None

PATIENT
  Age: 50 Year
  Sex: Female
  Weight: 76.5 kg

DRUGS (17)
  1. ESTRADIOL. [Concomitant]
     Active Substance: ESTRADIOL
  2. EZETIMIBE. [Concomitant]
     Active Substance: EZETIMIBE
  3. SOTALOL. [Suspect]
     Active Substance: SOTALOL
     Indication: VENTRICULAR TACHYCARDIA
     Dosage: ?          QUANTITY:0.5 TABLET(S);?
     Route: 048
  4. BUDESONIDE. [Concomitant]
     Active Substance: BUDESONIDE
  5. GABAPENTIN. [Concomitant]
     Active Substance: GABAPENTIN
  6. EPINEPHRINE. [Concomitant]
     Active Substance: EPINEPHRINE
  7. MONTELUKAST [Concomitant]
     Active Substance: MONTELUKAST SODIUM
  8. POTASSIUM CHLORIDE. [Concomitant]
     Active Substance: POTASSIUM CHLORIDE
  9. MULTI-VITAMIN [Concomitant]
     Active Substance: .ALPHA.-TOCOPHEROL ACETATE, DL-\ASCORBIC ACID\CYANOCOBALAMIN\FLUORIDE ION\FOLIC ACID\NIACIN\PYRIDOXINE\RIBOFLAVIN\THIAMINE\VITAMIN A\VITAMIN D
  10. BECLOMETHASONE [Concomitant]
     Active Substance: BECLOMETHASONE
  11. FISH OIL [Concomitant]
     Active Substance: FISH OIL
  12. SOTALOL. [Suspect]
     Active Substance: SOTALOL
     Indication: VENTRICULAR EXTRASYSTOLES
     Dosage: ?          QUANTITY:0.5 TABLET(S);?
     Route: 048
  13. PANTOPRAZOLE [Concomitant]
     Active Substance: PANTOPRAZOLE
  14. SPIRONOLACTONE. [Concomitant]
     Active Substance: SPIRONOLACTONE
  15. MIRALAX [Concomitant]
     Active Substance: POLYETHYLENE GLYCOL 3350
  16. FUROSEMIDE. [Concomitant]
     Active Substance: FUROSEMIDE
  17. VERAPAMIL [Concomitant]
     Active Substance: VERAPAMIL HYDROCHLORIDE

REACTIONS (3)
  - Documented hypersensitivity to administered product [None]
  - Abdominal discomfort [None]
  - Hypersensitivity [None]

NARRATIVE: CASE EVENT DATE: 20171011
